FAERS Safety Report 9729937 (Version 5)
Quarter: 2014Q1

REPORT INFORMATION
  Report Type: Spontaneous
  Country: JP (occurrence: None)
  Receive Date: 20131203
  Receipt Date: 20140306
  Transmission Date: 20141002
  Serious: Yes (Hospitalization)
  Sender: FDA-Public Use
  Company Number: DSJ-2013-25858

PATIENT
  Age: 65 Year
  Sex: Male
  Weight: 88.2 kg

DRUGS (7)
  1. OLMETEC (OLMESARTAN MEDOXOMIL) (TABLET) (OLMESARTAN MEDOXOMIL) [Suspect]
     Indication: HYPERTENSION
     Dosage: 20 MG (20 MG , 1 IN 1 D), PER ORAL
     Route: 048
     Dates: start: 20120602, end: 20131117
  2. BLINDED CS-747S [Suspect]
     Indication: ISCHAEMIC STROKE
     Dosage: BLINDED (1 IN 1 D), PER ORAL
     Route: 048
     Dates: start: 20120609, end: 20131117
  3. LIVALO [Concomitant]
  4. REBAMIPIDE [Concomitant]
     Indication: GASTRITIS PROPHYLAXIS
     Dosage: 1 MG (1 MG, 1 IN 1 D), PER ORAL
     Route: 048
     Dates: start: 20120510
  5. AMLODIPINE [Concomitant]
     Indication: HYPERTENSION
     Dosage: 5 MG (5 MG , 1 IN 1 D), PER ORAL
     Route: 048
     Dates: start: 20120602
  6. DICLOFENAC [Concomitant]
     Indication: BACK PAIN
     Dosage: 07/062012  OPTIMAL DOSE (1 IN 1 D), OTHER
     Route: 050
     Dates: start: 20120706
  7. VOLTAREN [Concomitant]
     Indication: BACK PAIN
     Dosage: AS NEEDED (25 MG) , PER ORAL
     Route: 048
     Dates: start: 20130118

REACTIONS (8)
  - Subdural haematoma [None]
  - Road traffic accident [None]
  - Ear haemorrhage [None]
  - Epistaxis [None]
  - Bacteraemia [None]
  - Brain contusion [None]
  - Subarachnoid haemorrhage [None]
  - Subdural haematoma [None]
